FAERS Safety Report 8882460 (Version 1)
Quarter: 2012Q4

REPORT INFORMATION
  Report Type: 
  Country: US (occurrence: US)
  Receive Date: 20121105
  Receipt Date: 20121105
  Transmission Date: 20130627
  Serious: Yes (Other)
  Sender: FDA-Public Use
  Company Number: CHPA2012US022701

PATIENT
  Age: 94 Year
  Sex: Female

DRUGS (1)
  1. MYOFLEX ANALGESIC CREME [Suspect]
     Indication: MUSCULOSKELETAL PAIN
     Dosage: Dime sized, as needed
     Route: 061

REACTIONS (1)
  - Arthritis [Not Recovered/Not Resolved]
